FAERS Safety Report 19417685 (Version 1)
Quarter: 2021Q2

REPORT INFORMATION
  Report Type: Spontaneous
  Country: US (occurrence: US)
  Receive Date: 20210615
  Receipt Date: 20210615
  Transmission Date: 20210717
  Serious: Yes (Other)
  Sender: FDA-Public Use
  Company Number: None

PATIENT
  Age: 61 Year
  Sex: Male
  Weight: 88.2 kg

DRUGS (1)
  1. ALLERGY RELIEF D 12 HOUR [Suspect]
     Active Substance: LORATADINE\PSEUDOEPHEDRINE SULFATE
     Indication: SEASONAL ALLERGY
     Dosage: ?          QUANTITY:1 TABLET(S);?
     Route: 048
     Dates: start: 20210510, end: 20210514

REACTIONS (3)
  - Dizziness [None]
  - Vertigo [None]
  - Product quality issue [None]

NARRATIVE: CASE EVENT DATE: 20210512
